FAERS Safety Report 13624827 (Version 1)
Quarter: 2017Q2

REPORT INFORMATION
  Report Type: Not Available
  Country: US (occurrence: US)
  Receive Date: 20170607
  Receipt Date: 20170607
  Transmission Date: 20170830
  Serious: Yes (Other)
  Sender: FDA-Public Use
  Company Number: US-ANIPHARMA-2017-US-006120

PATIENT
  Age: 39 Year
  Sex: Female

DRUGS (3)
  1. TOPIRAMATE. [Suspect]
     Active Substance: TOPIRAMATE
     Dosage: 50MG/DAY
  2. CALCIUM CARBONATE. [Suspect]
     Active Substance: CALCIUM CARBONATE
     Dosage: 1000MG/DAY
     Route: 048
  3. MECLIZINE (NON-SPECIFIC) [Suspect]
     Active Substance: MECLIZINE HYDROCHLORIDE
     Dosage: 25MG/DAY AS NEEDED

REACTIONS (2)
  - Salivary gland calculus [Unknown]
  - Sialoadenitis [Unknown]
